FAERS Safety Report 7642577-9 (Version None)
Quarter: 2011Q3

REPORT INFORMATION
  Report Type: 
  Country: None (occurrence: None)
  Receive Date: 20110728
  Receipt Date: 20110721
  Transmission Date: 20111222
  Serious: Yes (Hospitalization, Other)
  Sender: FDA-Public Use
  Company Number: US-BAYER-2010-006403

PATIENT
  Age: 30 Year
  Sex: Female
  Weight: 94.059 kg

DRUGS (8)
  1. YAZ [Suspect]
     Indication: ORAL CONTRACEPTION
  2. METFORMIN HCL [Concomitant]
     Indication: POLYCYSTIC OVARIES
     Dosage: 100 MG, BID
     Route: 048
     Dates: start: 20061001, end: 20090114
  3. METRONIDAZOLE [Suspect]
     Indication: UNEVALUABLE EVENT
     Dosage: 500 MG, UNK
     Route: 048
     Dates: start: 20081016, end: 20090128
  4. FLUCONAZOLE [Concomitant]
     Indication: ANTIFUNGAL TREATMENT
     Dosage: 150 MG, UNK
     Route: 048
  5. DROSPIRENONE AND ETHINYL ESTRADIOL [Suspect]
     Indication: ORAL CONTRACEPTION
  6. YAZ [Suspect]
     Indication: PRODUCT USED FOR UNKNOWN INDICATION
     Dosage: UNK
     Route: 048
     Dates: start: 20080107, end: 20080827
  7. DROSPIRENONE AND ETHINYL ESTRADIOL [Suspect]
     Indication: PRODUCT USED FOR UNKNOWN INDICATION
     Dosage: UNK
     Route: 048
     Dates: start: 20090128
  8. YASMIN [Suspect]
     Dosage: UNK
     Dates: start: 20080827, end: 20090128

REACTIONS (1)
  - PULMONARY EMBOLISM [None]
